FAERS Safety Report 22144609 (Version 1)
Quarter: 2023Q1

REPORT INFORMATION
  Report Type: Report from Study
  Country: IN (occurrence: IN)
  Receive Date: 20230328
  Receipt Date: 20230328
  Transmission Date: 20230417
  Serious: Yes (Hospitalization)
  Sender: FDA-Public Use
  Company Number: IN-002147023-NVSC2023IN068622

PATIENT
  Age: 44 Year
  Sex: Male

DRUGS (2)
  1. SIMULECT [Suspect]
     Active Substance: BASILIXIMAB
     Indication: Renal transplant
     Dosage: (DOSE 20)
     Route: 042
     Dates: start: 20230223, end: 20230223
  2. SIMULECT [Suspect]
     Active Substance: BASILIXIMAB
     Dosage: (DOSE 20) (4TH DAY)
     Route: 042
     Dates: start: 20230227, end: 20230227

REACTIONS (1)
  - Kidney transplant rejection [Recovered/Resolved]

NARRATIVE: CASE EVENT DATE: 20230227
